FAERS Safety Report 21739045 (Version 1)
Quarter: 2022Q4

REPORT INFORMATION
  Report Type: Report from Study
  Country: CA (occurrence: CA)
  Receive Date: 20221216
  Receipt Date: 20221216
  Transmission Date: 20230113
  Serious: Yes (Death, Other)
  Sender: FDA-Public Use
  Company Number: CA-AUROBINDO-AUR-APL-2022-024145

PATIENT
  Age: 76 Year
  Sex: Female

DRUGS (15)
  1. AZITHROMYCIN [Suspect]
     Active Substance: AZITHROMYCIN
     Indication: Mycobacterial infection
     Dosage: UNK
     Route: 065
  2. AZITHROMYCIN [Suspect]
     Active Substance: AZITHROMYCIN
     Indication: Systemic infection
  3. AZITHROMYCIN [Suspect]
     Active Substance: AZITHROMYCIN
     Indication: Atypical mycobacterial infection
  4. LINEZOLID [Suspect]
     Active Substance: LINEZOLID
     Indication: Mycobacterial infection
     Dosage: UNK
     Route: 065
  5. LINEZOLID [Suspect]
     Active Substance: LINEZOLID
     Indication: Systemic infection
  6. LINEZOLID [Suspect]
     Active Substance: LINEZOLID
     Indication: Atypical mycobacterial infection
  7. MOXIFLOXACIN [Suspect]
     Active Substance: MOXIFLOXACIN
     Indication: Mycobacterial infection
     Dosage: UNK
     Route: 065
  8. MOXIFLOXACIN [Suspect]
     Active Substance: MOXIFLOXACIN
     Indication: Systemic infection
  9. MOXIFLOXACIN [Suspect]
     Active Substance: MOXIFLOXACIN
     Indication: Atypical mycobacterial infection
  10. AMIKACIN [Suspect]
     Active Substance: AMIKACIN
     Indication: Mycobacterial infection
     Dosage: UNK
     Route: 065
  11. AMIKACIN [Suspect]
     Active Substance: AMIKACIN
     Indication: Systemic infection
  12. AMIKACIN [Suspect]
     Active Substance: AMIKACIN
     Indication: Atypical mycobacterial infection
  13. RIFAMPIN [Suspect]
     Active Substance: RIFAMPIN
     Indication: Mycobacterial infection
     Dosage: UNK
     Route: 065
  14. RIFAMPIN [Suspect]
     Active Substance: RIFAMPIN
     Indication: Systemic infection
  15. RIFAMPIN [Suspect]
     Active Substance: RIFAMPIN
     Indication: Atypical mycobacterial infection

REACTIONS (1)
  - Drug ineffective [Fatal]
